FAERS Safety Report 14673615 (Version 2)
Quarter: 2018Q2

REPORT INFORMATION
  Report Type: Report from Study
  Country: NL (occurrence: NL)
  Receive Date: 20180323
  Receipt Date: 20180417
  Transmission Date: 20180711
  Serious: Yes (Hospitalization)
  Sender: FDA-Public Use
  Company Number: PHHY2018NL051421

PATIENT
  Age: 72 Year
  Sex: Male
  Weight: 86 kg

DRUGS (2)
  1. SANDOSTATIN LAR DEPOT [Suspect]
     Active Substance: OCTREOTIDE ACETATE
     Indication: DYSPEPSIA
     Dosage: 20 MG, (20MG/2ML) Q3W
     Route: 030
  2. SANDOSTATIN LAR DEPOT [Suspect]
     Active Substance: OCTREOTIDE ACETATE
     Dosage: 20 MG, (20MG/2ML) Q3W
     Route: 030
     Dates: start: 20140220

REACTIONS (6)
  - Product use in unapproved indication [Unknown]
  - Malaise [Recovering/Resolving]
  - Gastrointestinal disorder [Unknown]
  - Pancreatitis [Unknown]
  - Cholelithiasis [Unknown]
  - Inappropriate schedule of drug administration [Unknown]

NARRATIVE: CASE EVENT DATE: 20180319
